FAERS Safety Report 7307045-2 (Version None)
Quarter: 2011Q1

REPORT INFORMATION
  Report Type: 
  Country: None (occurrence: None)
  Receive Date: 20110223
  Receipt Date: 20110209
  Transmission Date: 20110831
  Serious: No
  Sender: FDA-Public Use
  Company Number: US-BIOGENIDEC-2011BI005897

PATIENT
  Age: 47 Year
  Sex: Female

DRUGS (2)
  1. TYSABRI [Suspect]
     Indication: MULTIPLE SCLEROSIS
     Route: 042
     Dates: start: 20110106
  2. AVONEX [Concomitant]
     Indication: MULTIPLE SCLEROSIS
     Route: 030
     Dates: start: 20030208

REACTIONS (8)
  - BONE PAIN [None]
  - ARTHRALGIA [None]
  - OCULAR ICTERUS [None]
  - MYALGIA [None]
  - DEPRESSION [None]
  - RASH [None]
  - PRURITUS GENERALISED [None]
  - MUSCLE SPASMS [None]
